FAERS Safety Report 7891042-2 (Version None)
Quarter: 2011Q4

REPORT INFORMATION
  Report Type: 
  Country: None (occurrence: None)
  Receive Date: 20111103
  Receipt Date: 20110728
  Transmission Date: 20120403
  Serious: No
  Sender: FDA-Public Use
  Company Number: US-AMGEN-USASP2011038378

PATIENT
  Age: 42 Year
  Sex: Female
  Weight: 185 kg

DRUGS (3)
  1. CLOBETA                            /00337102/ [Concomitant]
  2. ENBREL [Suspect]
     Indication: PSORIASIS
     Dosage: 50 MG, 2 TIMES/WK
  3. SEROQUEL [Concomitant]
     Dosage: 50 MG, UNK

REACTIONS (5)
  - INJECTION SITE RASH [None]
  - INJECTION SITE ERYTHEMA [None]
  - CONTUSION [None]
  - INJECTION SITE PRURITUS [None]
  - FATIGUE [None]
